FAERS Safety Report 8457977-7 (Version None)
Quarter: 2012Q2

REPORT INFORMATION
  Report Type: 
  Country: None (occurrence: None)
  Receive Date: 20120622
  Receipt Date: 20120612
  Transmission Date: 20120825
  Serious: Yes (Other)
  Sender: FDA-Public Use
  Company Number: US-JNJFOC-20120513718

PATIENT
  Sex: Female
  Weight: 56.7 kg

DRUGS (9)
  1. RISPERDAL [Suspect]
     Route: 048
     Dates: start: 20060101
  2. ZOLOFT [Suspect]
     Route: 048
     Dates: start: 20120101
  3. RISPERIDONE [Suspect]
     Indication: SCHIZOPHRENIA, PARANOID TYPE
     Route: 065
  4. ZOLOFT [Suspect]
     Indication: DEPRESSION
     Route: 048
     Dates: start: 20070101
  5. RISPERDAL [Suspect]
     Indication: PARANOIA
     Route: 048
  6. COUMADIN [Concomitant]
     Route: 065
  7. RISPERDAL [Suspect]
     Indication: SCHIZOPHRENIA
     Route: 048
  8. AN UNKNOWN MEDICATION [Concomitant]
     Indication: CARDIAC DISORDER
  9. RISPERDAL [Suspect]
     Route: 048
     Dates: start: 20060101

REACTIONS (8)
  - DIABETES MELLITUS [None]
  - DRUG INEFFECTIVE [None]
  - PARANOIA [None]
  - URINARY TRACT INFECTION [None]
  - SCHIZOPHRENIA [None]
  - COMA [None]
  - PNEUMONIA [None]
  - SOMNOLENCE [None]
